FAERS Safety Report 8369695-4 (Version None)
Quarter: 2012Q1

REPORT INFORMATION
  Report Type: 
  Country: None (occurrence: None)
  Receive Date: 20120323
  Receipt Date: 20110504
  Transmission Date: 20120608
  Serious: Yes (Hospitalization, Disabling)
  Sender: FDA-Public Use
  Company Number: 163-21880-11012267

PATIENT
  Age: 66 Year
  Sex: Female

DRUGS (22)
  1. PRAVASTATIN [Concomitant]
  2. BACTRIM DS [Concomitant]
  3. DILAUDID [Concomitant]
  4. HYDRALAZINE HCL [Concomitant]
  5. REVLIMID [Suspect]
     Indication: MULTIPLE MYELOMA
     Dosage: 5 MG, DAILY X 21 DAYS, PO; 10 MG, DAILY X 21 DAYS, THEN OFF FOR 7 DAYS, PO
     Route: 048
     Dates: start: 20110105
  6. LIPITOR [Concomitant]
  7. NEOMYCIN/POLYMYXIN (CONJUNCTION) [Concomitant]
  8. ROBAXIN [Concomitant]
  9. VANCOMYCIN [Concomitant]
  10. ACYCLOVIR [Concomitant]
  11. DEXAMETHASONE [Concomitant]
  12. AMLODIPINE BESYLATE [Concomitant]
  13. ASPIRIN [Concomitant]
  14. NEURONTIN [Concomitant]
  15. NOVOLIN N [Concomitant]
  16. FUROSEMIDE [Concomitant]
  17. LIDODERM [Concomitant]
  18. ZOFRAN [Concomitant]
  19. COREG [Concomitant]
  20. IMDUR (ISISORBIDE MONONITRATE) [Concomitant]
  21. PANTOPRAZOLE [Concomitant]
  22. VIROPTIC (TRIFLURIDINE) [Concomitant]

REACTIONS (1)
  - DIARRHOEA [None]
